FAERS Safety Report 6465646-8 (Version None)
Quarter: 2009Q4

REPORT INFORMATION
  Report Type: 
  Country: None (occurrence: None)
  Receive Date: 20091201
  Receipt Date: 20091123
  Transmission Date: 20100525
  Serious: Yes (Hospitalization, Other)
  Sender: FDA-Public Use
  Company Number: CA-ABBOTT-09P-028-0607256-00

PATIENT
  Sex: Male
  Weight: 62 kg

DRUGS (4)
  1. MAVIK [Suspect]
     Indication: HYPERTENSION
     Dates: start: 20090217, end: 20090603
  2. MAVIK [Suspect]
     Dates: start: 20090604, end: 20090815
  3. TENORMIN [Concomitant]
     Indication: DRUG USE FOR UNKNOWN INDICATION
  4. SERAX [Concomitant]
     Indication: DRUG USE FOR UNKNOWN INDICATION

REACTIONS (6)
  - ASTHENIA [None]
  - CHEST PAIN [None]
  - COUGH [None]
  - DYSPNOEA [None]
  - INFARCTION [None]
  - PULMONARY OEDEMA [None]
